FAERS Safety Report 10032663 (Version 1)
Quarter: 2014Q1

REPORT INFORMATION
  Report Type: Spontaneous
  Country: US (occurrence: US)
  Receive Date: 20140324
  Receipt Date: 20140324
  Transmission Date: 20141002
  Serious: No
  Sender: FDA-Public Use
  Company Number: US-PFIZER INC-2014080044

PATIENT
  Age: 86 Year
  Sex: Female

DRUGS (6)
  1. ADVIL [Suspect]
     Indication: PAIN IN EXTREMITY
     Dosage: 200 MG, TWO TIMES A DAY
     Route: 048
  2. POTASSIUM CHLORIDE [Concomitant]
     Dosage: 20 MEQ, UNK
  3. METFORMIN [Concomitant]
     Indication: DIABETES MELLITUS
     Dosage: 800 MG, TWO TIMES A DAY
  4. GLIPIZIDE [Concomitant]
     Dosage: 5 MG, TWO TIMES A DAY
  5. ATENOLOL [Concomitant]
     Indication: HYPERTENSION
     Dosage: 850 MG, UNK
  6. PROTONIX [Concomitant]
     Indication: GASTROOESOPHAGEAL REFLUX DISEASE
     Dosage: 20 MG, ONCE A DAY

REACTIONS (4)
  - Dyspepsia [Unknown]
  - Ulcer [Unknown]
  - Back pain [Unknown]
  - Pain [Unknown]
